FAERS Safety Report 18706505 (Version 1)
Quarter: 2021Q1

REPORT INFORMATION
  Report Type: Spontaneous
  Country: US (occurrence: US)
  Receive Date: 20210106
  Receipt Date: 20210106
  Transmission Date: 20210419
  Serious: Yes (Hospitalization)
  Sender: FDA-Public Use
  Company Number: None

PATIENT
  Age: 35 Year
  Sex: Male
  Weight: 72.1 kg

DRUGS (4)
  1. CYCLOPHOSPHAMIDE. [Concomitant]
     Active Substance: CYCLOPHOSPHAMIDE
     Dates: end: 20201224
  2. METHOTREXATE. [Suspect]
     Active Substance: METHOTREXATE
     Dates: end: 20201231
  3. CYTARABINE. [Concomitant]
     Active Substance: CYTARABINE
     Dates: end: 20210103
  4. MERCAPTOPURINE. [Concomitant]
     Active Substance: MERCAPTOPURINE
     Dates: end: 20210105

REACTIONS (6)
  - Meningitis aseptic [None]
  - Confusional state [None]
  - Pyrexia [None]
  - Musculoskeletal stiffness [None]
  - Back pain [None]
  - Headache [None]

NARRATIVE: CASE EVENT DATE: 20210104
